FAERS Safety Report 5164744-9 (Version None)
Quarter: 2006Q4

REPORT INFORMATION
  Report Type: 
  Country: None (occurrence: None)
  Receive Date: 20061205
  Receipt Date: 20021127
  Transmission Date: 20070319
  Serious: Yes (Hospitalization)
  Sender: FDA-Public Use
  Company Number: FR-GLAXOSMITHKLINE-B0286751A

PATIENT
  Sex: Female
  Weight: 2.8 kg

DRUGS (7)
  1. RETROVIR [Suspect]
     Indication: ANTIVIRAL PROPHYLAXIS
     Route: 048
     Dates: start: 19970509, end: 19970608
  2. VIDEX [Suspect]
     Indication: HIV INFECTION
     Dosage: 400MG PER DAY
     Dates: end: 19970226
  3. RETROVIR [Suspect]
     Indication: HIV INFECTION
     Dosage: 500MG PER DAY
  4. EPIVIR [Suspect]
     Indication: ANTIVIRAL PROPHYLAXIS
     Dosage: 6MG TWICE PER DAY
     Route: 048
     Dates: start: 19970509, end: 19970608
  5. EPIVIR [Suspect]
     Indication: HIV INFECTION
     Dates: start: 19970226, end: 19970508
  6. SKENAN [Concomitant]
     Dosage: 500MG PER DAY
     Dates: end: 19970226
  7. METHADONE HCL [Concomitant]
     Dosage: 100MG PER DAY
     Dates: start: 19970226, end: 19970508

REACTIONS (6)
  - ACCIDENTAL OVERDOSE [None]
  - BLOOD CREATINE PHOSPHOKINASE INCREASED [None]
  - DRUG EXPOSURE DURING PREGNANCY [None]
  - HEART DISEASE CONGENITAL [None]
  - TRANSAMINASES INCREASED [None]
  - VENTRICULAR SEPTAL DEFECT [None]
